FAERS Safety Report 21674420 (Version 1)
Quarter: 2022Q4

REPORT INFORMATION
  Report Type: Spontaneous
  Country: CN (occurrence: CN)
  Receive Date: 20221202
  Receipt Date: 20221202
  Transmission Date: 20230112
  Serious: Yes (Death, Hospitalization, Other)
  Sender: FDA-Public Use
  Company Number: CN-PADAGIS-2022PAD01061

PATIENT

DRUGS (3)
  1. MOMETASONE FUROATE [Suspect]
     Active Substance: MOMETASONE FUROATE
     Indication: Rash
     Dosage: UNK
     Route: 065
  2. DEXAMETHASONE [Suspect]
     Active Substance: DEXAMETHASONE
     Indication: Product used for unknown indication
     Dosage: UNK
     Route: 065
  3. HYDROCORTISONE [Suspect]
     Active Substance: HYDROCORTISONE
     Indication: Adrenocortical insufficiency neonatal
     Dosage: UNK
     Route: 065

REACTIONS (7)
  - Drug hypersensitivity [Fatal]
  - Obesity [Unknown]
  - Adrenocortical insufficiency acute [Unknown]
  - Hypertension [Unknown]
  - Product use issue [Unknown]
  - Growth retardation [Unknown]
  - Weight increased [Unknown]
